FAERS Safety Report 8991942 (Version 1)
Quarter: 2012Q4

REPORT INFORMATION
  Report Type: 
  Country: GB (occurrence: GB)
  Receive Date: 20121231
  Receipt Date: 20121231
  Transmission Date: 20130627
  Serious: Yes (Other)
  Sender: FDA-Public Use
  Company Number: GB-BANPHARM-20120492

PATIENT
  Age: 61 Year

DRUGS (16)
  1. IBUPROFEN UNKNOWN PRODUCT [Suspect]
     Indication: PAIN
     Dosage: 400 mg, TID,
     Route: 048
     Dates: start: 20121120, end: 20121127
  2. BISOPROLOL [Concomitant]
     Dosage: 2.5 mg, BID,
     Route: 048
  3. CARBOCISTEINE [Concomitant]
     Dosage: 750 mg, TID,
     Route: 048
  4. CLEXANE [Concomitant]
     Dosage: 40 mg, QD,
     Route: 058
     Dates: start: 20121021
  5. CO-CODAMOL [Concomitant]
     Dosage: PRN,
     Route: 048
  6. COLCHICINE [Concomitant]
     Dosage: 500 ?g, BID
     Route: 048
  7. DOXYCYCLINE [Concomitant]
     Dosage: 100 mg, QD,
     Route: 048
  8. FEXOFENADINE [Concomitant]
     Dosage: 180 mg, QD,
     Route: 048
  9. LORAZEPAM [Concomitant]
     Dosage: 0.5 mg, BID,
     Route: 048
     Dates: start: 20121105
  10. MORPHINE HYDROCHLORIDE [Concomitant]
     Dosage: PRN,
     Route: 048
  11. MST CONTINUS [Concomitant]
     Dosage: 30 mg, BID,
     Route: 048
  12. OMEPRAZOLE [Concomitant]
     Dosage: 20 mg, BID,
     Route: 048
  13. PARACETAMOL [Concomitant]
     Dosage: 1g, QID,
     Route: 048
  14. RAMIPRIL [Concomitant]
     Dosage: 5 mg, QD,
     Route: 048
  15. SERETIDE [Concomitant]
     Dosage: QID,
     Route: 055
  16. TRAMADOL [Concomitant]
     Dosage: 100 mg, QID,
     Route: 048

REACTIONS (3)
  - Erythema [Recovering/Resolving]
  - Dermatitis [Recovering/Resolving]
  - Skin exfoliation [Recovering/Resolving]
